FAERS Safety Report 8925302 (Version 6)
Quarter: 2013Q4

REPORT INFORMATION
  Report Type: Report from Study
  Country: FR (occurrence: FR)
  Receive Date: 20121126
  Receipt Date: 20131227
  Transmission Date: 20140711
  Serious: Yes (Hospitalization)
  Sender: FDA-Public Use
  Company Number: FR-BAYER-2012-110282

PATIENT
  Age: 76 Year
  Sex: Male
  Weight: 100 kg

DRUGS (7)
  1. REGORAFENIB [Suspect]
     Indication: COLORECTAL CANCER METASTATIC
     Dosage: 160 MG, QD
     Route: 048
     Dates: start: 20120623, end: 20120710
  2. REGORAFENIB [Suspect]
     Indication: COLORECTAL CANCER METASTATIC
     Dosage: 120 MG, QD
     Route: 048
     Dates: start: 20120721, end: 20120809
  3. REGORAFENIB [Suspect]
     Indication: COLORECTAL CANCER METASTATIC
     Dosage: 120 MG, QD
     Route: 048
     Dates: start: 20120822, end: 20120911
  4. REGORAFENIB [Suspect]
     Indication: COLORECTAL CANCER METASTATIC
     Dosage: 120 MG, QD
     Route: 048
     Dates: start: 20120921, end: 20121011
  5. FRAGMIN [Concomitant]
     Indication: PULMONARY EMBOLISM
     Dosage: 18000 U, UNK
     Route: 058
     Dates: start: 201111
  6. PERMIXON [Concomitant]
     Indication: PROSTATIC ADENOMA
     Dosage: 320 MG, QD
     Route: 048
     Dates: start: 201211
  7. FINASTERIDE [Concomitant]
     Indication: PROSTATIC ADENOMA
     Dosage: 5 MG, QD
     Route: 048
     Dates: start: 201211

REACTIONS (1)
  - Orchitis [Recovered/Resolved]
